FAERS Safety Report 5155911-9 (Version None)
Quarter: 2006Q4

REPORT INFORMATION
  Report Type: 
  Country: None (occurrence: None)
  Receive Date: 20061114
  Receipt Date: 20061103
  Transmission Date: 20070319
  Serious: Yes (Hospitalization)
  Sender: FDA-Public Use
  Company Number: 2006BI010960

PATIENT
  Age: 37 Year
  Sex: Female

DRUGS (1)
  1. AVONEX [Suspect]
     Indication: MULTIPLE SCLEROSIS
     Dates: start: 20060628

REACTIONS (4)
  - ENDOMETRIOSIS [None]
  - POSTOPERATIVE INFECTION [None]
  - SKIN INFECTION [None]
  - STAPHYLOCOCCAL INFECTION [None]
